FAERS Safety Report 6757047-X (Version None)
Quarter: 2010Q2

REPORT INFORMATION
  Report Type: 
  Country: None (occurrence: None)
  Receive Date: 20100604
  Receipt Date: 20100527
  Transmission Date: 20101027
  Serious: Yes (Other)
  Sender: FDA-Public Use
  Company Number: US-AMGEN-QUU391408

PATIENT
  Sex: Female
  Weight: 50.4 kg

DRUGS (2)
  1. PROCRIT [Suspect]
     Indication: DIALYSIS
     Dates: start: 20080101, end: 20100211
  2. ARANESP [Suspect]
     Dates: start: 20090701

REACTIONS (4)
  - DRUG HYPERSENSITIVITY [None]
  - EYE SWELLING [None]
  - HAEMOGLOBIN DECREASED [None]
  - SWELLING FACE [None]
